FAERS Safety Report 19883861 (Version 1)
Quarter: 2021Q3

REPORT INFORMATION
  Report Type: Other
  Country: GB (occurrence: GB)
  Receive Date: 20210927
  Receipt Date: 20210927
  Transmission Date: 20211014
  Serious: Yes (Other)
  Sender: FDA-Public Use
  Company Number: GB-LUPIN PHARMACEUTICALS INC.-2021-18039

PATIENT
  Age: 24 Year
  Sex: Male
  Weight: 69.85 kg

DRUGS (1)
  1. SERTRALINE [Suspect]
     Active Substance: SERTRALINE HYDROCHLORIDE
     Indication: ANXIETY
     Dosage: 25 MILLIGRAM
     Route: 048
     Dates: start: 20210909

REACTIONS (1)
  - Hypoaesthesia oral [Not Recovered/Not Resolved]

NARRATIVE: CASE EVENT DATE: 20210910
